FAERS Safety Report 12894249 (Version 1)
Quarter: 2016Q4

REPORT INFORMATION
  Report Type: Spontaneous
  Country: RU (occurrence: RU)
  Receive Date: 20161028
  Receipt Date: 20161028
  Transmission Date: 20170207
  Serious: Yes (Other)
  Sender: FDA-Public Use
  Company Number: RU-ELI_LILLY_AND_COMPANY-RU201610009020

PATIENT
  Age: 57 Year
  Sex: Male

DRUGS (6)
  1. ERBITUX [Suspect]
     Active Substance: CETUXIMAB
     Indication: COLON CANCER METASTATIC
  2. FLUOROURACIL. [Concomitant]
     Active Substance: FLUOROURACIL
     Indication: COLON CANCER METASTATIC
     Dosage: UNK UNK, UNKNOWN
     Route: 065
     Dates: start: 20141021, end: 20141218
  3. IRINOTECAN [Concomitant]
     Active Substance: IRINOTECAN
     Indication: COLON CANCER METASTATIC
     Dosage: UNK UNK, UNKNOWN
     Route: 065
     Dates: start: 20141021, end: 20141218
  4. OXALIPLATIN. [Concomitant]
     Active Substance: OXALIPLATIN
     Indication: COLON CANCER METASTATIC
     Dosage: UNK UNK, UNKNOWN
     Route: 065
     Dates: start: 20141021, end: 20141218
  5. ERBITUX [Suspect]
     Active Substance: CETUXIMAB
     Indication: K-RAS GENE MUTATION
     Route: 065
     Dates: start: 20141021, end: 20141218
  6. FOLINIC ACID [Concomitant]
     Active Substance: LEUCOVORIN
     Indication: COLON CANCER METASTATIC
     Dosage: UNK UNK, UNKNOWN
     Route: 065
     Dates: start: 20141021, end: 20141218

REACTIONS (1)
  - Febrile neutropenia [Unknown]

NARRATIVE: CASE EVENT DATE: 2014
